FAERS Safety Report 5498333-3 (Version None)
Quarter: 2007Q4

REPORT INFORMATION
  Report Type: 
  Country: None (occurrence: None)
  Receive Date: 20071025
  Receipt Date: 20070502
  Transmission Date: 20080405
  Serious: No
  Sender: FDA-Public Use
  Company Number: A0649691A

PATIENT
  Age: 82 Year
  Sex: Male

DRUGS (10)
  1. ADVAIR DISKUS 100/50 [Suspect]
     Indication: CHRONIC OBSTRUCTIVE PULMONARY DISEASE
     Dosage: 1PUFF TWICE PER DAY
     Route: 055
     Dates: start: 20060901
  2. ZOCOR [Concomitant]
  3. IMDUR [Concomitant]
  4. ASPIRIN [Concomitant]
  5. BUSPAR [Concomitant]
  6. MAXZIDE [Concomitant]
  7. AVAPRO [Concomitant]
  8. PLAVIX [Concomitant]
  9. ATENOLOL [Concomitant]
  10. CARDURA [Concomitant]

REACTIONS (2)
  - DYSPHONIA [None]
  - MUSCLE SPASMS [None]
